FAERS Safety Report 10396217 (Version 2)
Quarter: 2014Q3

REPORT INFORMATION
  Report Type: Spontaneous
  Country: GB (occurrence: GB)
  Receive Date: 20140820
  Receipt Date: 20140918
  Transmission Date: 20150326
  Serious: Yes (Other)
  Sender: FDA-Public Use
  Company Number: GB-ACTAVISPR-2014-17781

PATIENT
  Sex: Female
  Weight: 61 kg

DRUGS (3)
  1. MIGARD [Concomitant]
     Indication: MIGRAINE
     Dosage: UNK, PRN
     Route: 065
  2. PROPRANOLOL [Suspect]
     Active Substance: PROPRANOLOL\PROPRANOLOL HYDROCHLORIDE
     Indication: HYPERTENSION
  3. PROPRANOLOL [Suspect]
     Active Substance: PROPRANOLOL\PROPRANOLOL HYDROCHLORIDE
     Indication: MIGRAINE
     Dosage: 40 MG, BID
     Route: 048
     Dates: start: 20120731, end: 20140718

REACTIONS (5)
  - Weight increased [Recovered/Resolved]
  - Cardiac flutter [Recovering/Resolving]
  - Blood pressure increased [Recovered/Resolved]
  - Palpitations [Recovered/Resolved]
  - Drug ineffective [Recovering/Resolving]
